FAERS Safety Report 7327921-4 (Version None)
Quarter: 2011Q1

REPORT INFORMATION
  Report Type: 
  Country: None (occurrence: None)
  Receive Date: 20110224
  Receipt Date: 20110224
  Transmission Date: 20110831
  Serious: Yes (Other)
  Sender: FDA-Public Use
  Company Number: None

PATIENT
  Age: 42 Year
  Sex: Female
  Weight: 57.6068 kg

DRUGS (3)
  1. ZOLPIDEM [Suspect]
     Indication: INSOMNIA
     Dosage: 1 TABLET AT BEDTIME
     Dates: start: 20080101
  2. ZOLOFT [Concomitant]
  3. ADDERALL 10 [Concomitant]

REACTIONS (2)
  - SOMNOLENCE [None]
  - PRODUCT SUBSTITUTION ISSUE [None]
